FAERS Safety Report 17758006 (Version 1)
Quarter: 2020Q2

REPORT INFORMATION
  Report Type: Spontaneous
  Country: FR (occurrence: FR)
  Receive Date: 20200507
  Receipt Date: 20200507
  Transmission Date: 20200714
  Serious: Yes (Hospitalization)
  Sender: FDA-Public Use
  Company Number: NVSC2020FR124288

PATIENT
  Age: 67 Year
  Sex: Male
  Weight: 86 kg

DRUGS (6)
  1. OXYCODONE [Concomitant]
     Active Substance: OXYCODONE
     Indication: PRODUCT USED FOR UNKNOWN INDICATION
     Route: 065
  2. ZINFORO [Suspect]
     Active Substance: CEFTAROLINE FOSAMIL
     Indication: ANTIBIOTIC THERAPY
     Dosage: 600 MG, QD
     Route: 042
     Dates: start: 20200110, end: 20200204
  3. MOVICOL [Concomitant]
     Active Substance: POLYETHYLENE GLYCOL 3350\POTASSIUM CHLORIDE\SODIUM BICARBONATE\SODIUM CHLORIDE
     Indication: PRODUCT USED FOR UNKNOWN INDICATION
     Route: 065
  4. NOVORAPID [Concomitant]
     Active Substance: INSULIN ASPART
     Indication: PRODUCT USED FOR UNKNOWN INDICATION
     Route: 065
  5. HYDROXYZINE HYDROCHLORIDE. [Suspect]
     Active Substance: HYDROXYZINE HYDROCHLORIDE
     Indication: PRODUCT USED FOR UNKNOWN INDICATION
     Dosage: 25 MG, QD
     Route: 048
     Dates: start: 20200120, end: 20200203
  6. LOVENOX [Suspect]
     Active Substance: ENOXAPARIN SODIUM
     Indication: THROMBOSIS PROPHYLAXIS
     Dosage: 4000 IU, QD
     Route: 058
     Dates: start: 20200127, end: 20200202

REACTIONS (3)
  - Acute kidney injury [Not Recovered/Not Resolved]
  - Eosinophilia [Not Recovered/Not Resolved]
  - Rash morbilliform [Recovering/Resolving]

NARRATIVE: CASE EVENT DATE: 20200203
